FAERS Safety Report 6912058-6 (Version None)
Quarter: 2010Q3

REPORT INFORMATION
  Report Type: 
  Country: None (occurrence: None)
  Receive Date: 20100806
  Receipt Date: 20071120
  Transmission Date: 20110219
  Serious: No
  Sender: FDA-Public Use
  Company Number: US-PFIZER INC-2007096403

PATIENT
  Age: 90 Year
  Sex: Female
  Weight: 52.727 kg

DRUGS (2)
  1. DETROL LA [Suspect]
     Indication: HYPERTONIC BLADDER
     Route: 048
     Dates: start: 20070101
  2. ALDOMET [Concomitant]

REACTIONS (4)
  - DRY MOUTH [None]
  - DRY SKIN [None]
  - FLUSHING [None]
  - SKIN WRINKLING [None]
